FAERS Safety Report 4555692-3 (Version None)
Quarter: 2005Q1

REPORT INFORMATION
  Report Type: 
  Country: None (occurrence: None)
  Receive Date: 20050112
  Receipt Date: 20040302
  Transmission Date: 20050727
  Serious: Yes (Other)
  Sender: FDA-Public Use
  Company Number: 200414333BWH

PATIENT
  Age: 78 Year
  Sex: Male
  Weight: 83.9154 kg

DRUGS (4)
  1. CIPROFLOXACIN HYDROCHLORIDE [Suspect]
     Indication: BURNING SENSATION
     Dosage: 1000 MG, TOTAL DAILY, ORAL
     Route: 048
     Dates: start: 20040116
  2. CIPROFLOXACIN HYDROCHLORIDE [Suspect]
     Indication: NOCTURIA
     Dosage: 1000 MG, TOTAL DAILY, ORAL
     Route: 048
     Dates: start: 20040116
  3. CIPROFLOXACIN HYDROCHLORIDE [Suspect]
     Indication: PROSTATIC DISORDER
     Dosage: 1000 MG, TOTAL DAILY, ORAL
     Route: 048
     Dates: start: 20040116
  4. TOPROL-XL [Concomitant]

REACTIONS (4)
  - AGITATION [None]
  - DYSPNOEA [None]
  - HYPERSENSITIVITY [None]
  - NERVOUSNESS [None]
